FAERS Safety Report 7459604-4 (Version None)
Quarter: 2011Q2

REPORT INFORMATION
  Report Type: 
  Country: None (occurrence: None)
  Receive Date: 20110505
  Receipt Date: 20110427
  Transmission Date: 20111010
  Serious: Yes (Other)
  Sender: FDA-Public Use
  Company Number: PHHY2011US18824

PATIENT
  Sex: Female

DRUGS (5)
  1. PROVIGIL [Concomitant]
     Dosage: 200 MG, UNK
  2. XYZAL [Concomitant]
     Dosage: 5 MG, UNK
  3. GILENYA [Suspect]
     Dosage: 0.5 MG, QD
     Route: 048
     Dates: start: 20110203
  4. AMBIEN [Concomitant]
     Dosage: UNK
  5. TRAMADOL [Concomitant]
     Dosage: UNK

REACTIONS (3)
  - DYSPNOEA [None]
  - URINARY TRACT INFECTION [None]
  - CHEST PAIN [None]
